FAERS Safety Report 10858175 (Version 5)
Quarter: 2017Q3

REPORT INFORMATION
  Report Type: Report from Study
  Country: US (occurrence: US)
  Receive Date: 20150223
  Receipt Date: 20170722
  Transmission Date: 20171127
  Serious: Yes (Hospitalization, Other)
  Sender: FDA-Public Use
  Company Number: US-BAXTER-2015BAX008538

PATIENT
  Age: 15 Year
  Sex: Male
  Weight: 76 kg

DRUGS (29)
  1. CRIZOTINIB [Suspect]
     Active Substance: CRIZOTINIB
     Dosage: COURSE B, DAYS 1-21
     Route: 048
     Dates: end: 20140420
  2. DOXORUBICIN HCL [Suspect]
     Active Substance: DOXORUBICIN HYDROCHLORIDE
     Indication: ANAPLASTIC LARGE CELL LYMPHOMA T- AND NULL-CELL TYPES
     Dosage: OVER 1-15 MINUTES ON DAYS 4 AND 5, COURSE B
     Route: 042
     Dates: end: 20140406
  3. CYTARABINE. [Suspect]
     Active Substance: CYTARABINE
     Indication: ANAPLASTIC LARGE CELL LYMPHOMA T- AND NULL-CELL TYPES
     Dosage: 15-24 MG DAY 1 (AGE BASED DOSING)
     Route: 037
     Dates: start: 20131206
  4. MAGIC MOUTHWASH [Concomitant]
     Active Substance: DIPHENHYDRAMINE HYDROCHLORIDE\LIDOCAINE HYDROCHLORIDE\NYSTATIN
     Indication: OROPHARYNGEAL PAIN
     Route: 065
  5. EMLA [Concomitant]
     Active Substance: LIDOCAINE\PRILOCAINE
     Indication: PRODUCT USED FOR UNKNOWN INDICATION
     Route: 065
  6. METHOTREXATE. [Suspect]
     Active Substance: METHOTREXATE
     Dosage: OVER 3 HOURS ON DAY 1 COURSE B
     Route: 042
     Dates: end: 20140402
  7. BENADRYL [Concomitant]
     Active Substance: DIPHENHYDRAMINE HYDROCHLORIDE
     Indication: PRODUCT USED FOR UNKNOWN INDICATION
     Route: 065
  8. NYSTATIN. [Concomitant]
     Active Substance: NYSTATIN
     Indication: PRODUCT USED FOR UNKNOWN INDICATION
     Route: 065
  9. CRIZOTINIB [Suspect]
     Active Substance: CRIZOTINIB
     Dosage: RESUMED TREATMENT
     Route: 048
     Dates: start: 20140416, end: 20140419
  10. VP-16 [Suspect]
     Active Substance: ETOPOSIDE
     Indication: ANAPLASTIC LARGE CELL LYMPHOMA T- AND NULL-CELL TYPES
     Dosage: OVER 2 HOURS ON DAYS 4 AND 5, COURSE A
     Route: 042
     Dates: start: 20131211, end: 20140316
  11. CRIZOTINIB [Suspect]
     Active Substance: CRIZOTINIB
     Indication: ANAPLASTIC LARGE CELL LYMPHOMA T- AND NULL-CELL TYPES
     Dosage: COURSE A, DAYS 1-21
     Route: 048
     Dates: start: 20131211
  12. DEXAMETHASONE. [Suspect]
     Active Substance: DEXAMETHASONE
     Dosage: DAYS 1-5 COURSE B
     Route: 048
     Dates: end: 20140406
  13. CYTARABINE. [Suspect]
     Active Substance: CYTARABINE
     Dosage: OVER ONE HOUR DAYS 4 AND 5 (FOUR DOSES)
     Route: 042
     Dates: start: 20131211, end: 20140316
  14. HYDROCORTISONE. [Suspect]
     Active Substance: HYDROCORTISONE
     Indication: PRODUCT USED FOR UNKNOWN INDICATION
     Dosage: 7.5-12 MG DAY 1 (AGE BASED DOSING),
     Route: 037
     Dates: start: 20131206
  15. SEPTRA [Concomitant]
     Active Substance: SULFAMETHOXAZOLE\TRIMETHOPRIM
     Indication: PRODUCT USED FOR UNKNOWN INDICATION
     Route: 065
  16. CYCLOPHOSPHAMIDE FOR INJECTION, USP [Suspect]
     Active Substance: CYCLOPHOSPHAMIDE
     Indication: ANAPLASTIC LARGE CELL LYMPHOMA T- AND NULL-CELL TYPES
     Dosage: OVER 15-30 MINUTES ON DAY 1 AND 2
     Route: 042
     Dates: start: 20131206
  17. METHOTREXATE. [Suspect]
     Active Substance: METHOTREXATE
     Dosage: OVER 3 HOURS ON DAY 1 COURSE A
     Route: 042
     Dates: start: 20131211
  18. DEXAMETHASONE. [Suspect]
     Active Substance: DEXAMETHASONE
     Dosage: DAYS 1-5 COURSE A
     Route: 048
     Dates: start: 20131211
  19. ZANTAC [Concomitant]
     Active Substance: RANITIDINE HYDROCHLORIDE
     Indication: PRODUCT USED FOR UNKNOWN INDICATION
     Route: 065
  20. IFOSFAMIDE FOR INJECTION [Suspect]
     Active Substance: IFOSFAMIDE
     Indication: ANAPLASTIC LARGE CELL LYMPHOMA T- AND NULL-CELL TYPES
     Dosage: OVER 60 MINUTES ON DAYS 1-5, COURSE A
     Route: 042
     Dates: start: 20131211, end: 20140316
  21. DEXAMETHASONE. [Suspect]
     Active Substance: DEXAMETHASONE
     Indication: ANAPLASTIC LARGE CELL LYMPHOMA T- AND NULL-CELL TYPES
     Dosage: PROPHASE, DAY 1-2
     Route: 048
     Dates: start: 20131206
  22. DEXAMETHASONE. [Suspect]
     Active Substance: DEXAMETHASONE
     Dosage: PROPHASE, DAYS 3-5
     Route: 048
     Dates: start: 20131208
  23. CAPHOSOL [Concomitant]
     Active Substance: CALCIUM CHLORIDE\SODIUM CHLORIDE\SODIUM PHOSPHATE, DIBASIC, ANHYDROUS\SODIUM PHOSPHATE, MONOBASIC, ANHYDROUS
     Indication: PRODUCT USED FOR UNKNOWN INDICATION
     Route: 065
  24. CLARITIN [Concomitant]
     Active Substance: LORATADINE
     Indication: PRODUCT USED FOR UNKNOWN INDICATION
     Route: 065
  25. CYCLOPHOSPHAMIDE FOR INJECTION, USP [Suspect]
     Active Substance: CYCLOPHOSPHAMIDE
     Dosage: OVER 15-30 MIN ON DAYS 1-5, COURSE B, LAST DOSE
     Route: 042
     Dates: end: 20140406
  26. METHOTREXATE. [Suspect]
     Active Substance: METHOTREXATE
     Indication: ANAPLASTIC LARGE CELL LYMPHOMA T- AND NULL-CELL TYPES
     Dosage: 7.5-12 MG ON DAY 1 (AGE BASED DOSING)
     Route: 037
     Dates: start: 20131206
  27. CARAFATE [Concomitant]
     Active Substance: SUCRALFATE
     Indication: OROPHARYNGEAL PAIN
     Route: 065
  28. EPIPEN [Concomitant]
     Active Substance: EPINEPHRINE
     Indication: PRODUCT USED FOR UNKNOWN INDICATION
     Route: 065
  29. CLARITIN [Concomitant]
     Active Substance: LORATADINE
     Indication: PRODUCT USED FOR UNKNOWN INDICATION
     Route: 065

REACTIONS (8)
  - Stomatitis [Recovered/Resolved]
  - White blood cell count decreased [Recovered/Resolved]
  - Febrile neutropenia [Recovered/Resolved]
  - Pneumonia [Recovered/Resolved]
  - Pulmonary embolism [Recovered/Resolved]
  - Dehydration [Recovered/Resolved]
  - Hypoalbuminaemia [Recovered/Resolved]
  - Thrombocytopenia [Recovered/Resolved]

NARRATIVE: CASE EVENT DATE: 20140411
